FAERS Safety Report 5372910-2 (Version None)
Quarter: 2007Q2

REPORT INFORMATION
  Report Type: 
  Country: None (occurrence: None)
  Receive Date: 20070626
  Receipt Date: 20070614
  Transmission Date: 20071010
  Serious: Yes (Other)
  Sender: FDA-Public Use
  Company Number: 2007AP000653

PATIENT

DRUGS (1)
  1. APO-DIVALPROEX [Suspect]
     Dosage: TAB; PO
     Route: 048

REACTIONS (1)
  - HEPATIC STEATOSIS [None]
